FAERS Safety Report 15312089 (Version 1)
Quarter: 2018Q3

REPORT INFORMATION
  Report Type: Spontaneous
  Country: US (occurrence: US)
  Receive Date: 20180823
  Receipt Date: 20180823
  Transmission Date: 20181010
  Serious: Yes (Other)
  Sender: FDA-Public Use
  Company Number: US-ASTRAZENECA-2018SF04505

PATIENT
  Sex: Male
  Weight: 95.3 kg

DRUGS (19)
  1. ROPINIROLE HYDROCHLORIDE. [Suspect]
     Active Substance: ROPINIROLE HYDROCHLORIDE
     Indication: PARKINSON^S DISEASE
     Dosage: 0.25 MG THREE TIMES A DAY WHICH HE STARTED 5 YEARS AGO
     Route: 048
  2. VITAMIN D [Concomitant]
     Active Substance: CHOLECALCIFEROL
     Route: 048
  3. OMEPRAZOLE. [Suspect]
     Active Substance: OMEPRAZOLE
     Indication: ABDOMINAL DISCOMFORT
     Route: 048
  4. ATORVASTATIN [Concomitant]
     Active Substance: ATORVASTATIN
     Indication: BLOOD CHOLESTEROL ABNORMAL
     Route: 048
  5. BABY ASPIRIN [Concomitant]
     Active Substance: ASPIRIN
     Indication: ILIAC ARTERY OCCLUSION
     Route: 048
  6. CARBIDOPA LEVODOPA [Suspect]
     Active Substance: CARBIDOPA\LEVODOPA
     Indication: PARKINSON^S DISEASE
     Dosage: FROM 1 TABLET 3 TIMES A DAY TO 2 PILLS 5 TIMES A DAY
     Route: 048
  7. ISOSORBIDE. [Suspect]
     Active Substance: ISOSORBIDE
     Indication: ARTERIAL OCCLUSIVE DISEASE
     Route: 048
  8. SYMBICORT [Suspect]
     Active Substance: BUDESONIDE\FORMOTEROL FUMARATE DIHYDRATE
     Indication: ASTHMA
     Dosage: 80/4.5 MCG TWO TIMES A DAY
     Route: 055
     Dates: start: 201310
  9. AMLODIPINE [Concomitant]
     Active Substance: AMLODIPINE BESYLATE
     Indication: CARDIAC DISORDER
     Route: 048
  10. PROAIR HFA [Concomitant]
     Active Substance: ALBUTEROL SULFATE
     Indication: WHEEZING
     Dosage: 2 PUFFS EVERY 6 HOURS AND AS NEEDED
     Route: 055
     Dates: start: 2017
  11. ALBUTEROL. [Concomitant]
     Active Substance: ALBUTEROL
  12. CARBIDOPA LEVODOPA [Suspect]
     Active Substance: CARBIDOPA\LEVODOPA
     Indication: PARKINSON^S DISEASE
     Dosage: 25 100, 2 PILLS 5 TIMES A DAY, WHICH HE SAID HE STARTED TAKING 5 YEARS AGO
     Route: 048
  13. PROAIR HFA [Concomitant]
     Active Substance: ALBUTEROL SULFATE
     Indication: ASTHMA
     Dosage: 2 PUFFS EVERY 6 HOURS AND AS NEEDED
     Route: 055
     Dates: start: 2017
  14. BABY ASPIRIN [Concomitant]
     Active Substance: ASPIRIN
     Indication: CARDIAC DISORDER
     Route: 048
  15. VITAMIN C [Concomitant]
     Active Substance: ASCORBIC ACID
     Route: 048
  16. MULTVITAMIN [Concomitant]
     Dosage: DAILY
     Route: 048
  17. COLRITE [Concomitant]
     Indication: CONSTIPATION
     Route: 048
  18. METOPROLOL. [Suspect]
     Active Substance: METOPROLOL
     Indication: HYPERTENSION
     Route: 048
  19. ALLERGY RELIEF PILL OTC [Concomitant]
     Indication: MULTIPLE ALLERGIES
     Dosage: 10 MG EVERY 24 HOURS
     Route: 048

REACTIONS (17)
  - Parkinson^s disease [Unknown]
  - Body height decreased [Unknown]
  - Coronary artery occlusion [Unknown]
  - Cough [Unknown]
  - Myalgia [Unknown]
  - Pain [Unknown]
  - Grip strength decreased [Unknown]
  - Therapy cessation [Unknown]
  - Asthma [Unknown]
  - Gait disturbance [Unknown]
  - Cardiac disorder [Unknown]
  - Bowel movement irregularity [Unknown]
  - Dyspnoea [Unknown]
  - Constipation [Unknown]
  - Irritability [Unknown]
  - Abdominal discomfort [Unknown]
  - Drug dose omission [Unknown]
